FAERS Safety Report 20420740 (Version 1)
Quarter: 2022Q1

REPORT INFORMATION
  Report Type: Spontaneous
  Country: US (occurrence: None)
  Receive Date: 20220202
  Receipt Date: 20220202
  Transmission Date: 20220423
  Serious: No
  Sender: FDA-Public Use
  Company Number: None

PATIENT
  Age: 50 Year
  Sex: Female
  Weight: 67.5 kg

DRUGS (2)
  1. VUITY [Suspect]
     Active Substance: PILOCARPINE HYDROCHLORIDE
     Indication: Hypermetropia
     Dosage: OTHER QUANTITY : 1 DROP(S);?FREQUENCY : DAILY;?
     Route: 047
     Dates: start: 20220131, end: 20220201
  2. OZEMPIC [Concomitant]
     Active Substance: SEMAGLUTIDE

REACTIONS (2)
  - Vision blurred [None]
  - Blindness transient [None]

NARRATIVE: CASE EVENT DATE: 20220201
